FAERS Safety Report 7632343-2 (Version None)
Quarter: 2011Q3

REPORT INFORMATION
  Report Type: 
  Country: None (occurrence: None)
  Receive Date: 20110725
  Receipt Date: 20100809
  Transmission Date: 20111222
  Serious: No
  Sender: FDA-Public Use
  Company Number: US-BRISTOL-MYERS SQUIBB COMPANY-15232036

PATIENT
  Age: 36 Year
  Sex: Female
  Weight: 57 kg

DRUGS (1)
  1. COUMADIN [Suspect]
     Dosage: STARTED 2YRS AGO;STOPPED FOR A DAY
     Route: 048

REACTIONS (4)
  - SENSORY DISTURBANCE [None]
  - HAEMORRHAGE [None]
  - CONTUSION [None]
  - WEIGHT DECREASED [None]
